FAERS Safety Report 8168493-4 (Version None)
Quarter: 2012Q1

REPORT INFORMATION
  Report Type: 
  Country: None (occurrence: None)
  Receive Date: 20120227
  Receipt Date: 20120227
  Transmission Date: 20120608
  Serious: Yes (Other)
  Sender: FDA-Public Use
  Company Number: None

PATIENT
  Age: 54 Year
  Sex: Male
  Weight: 90.718 kg

DRUGS (2)
  1. ADVAIR DISKUS 100/50 [Suspect]
     Indication: ASTHMA
     Dosage: 100/50
     Route: 050
     Dates: start: 20120212, end: 20120223
  2. LEVAQUIN [Concomitant]
     Indication: OXYGEN SATURATION DECREASED
     Route: 048

REACTIONS (2)
  - DYSPHONIA [None]
  - APHONIA [None]
